FAERS Safety Report 4536792-0 (Version None)
Quarter: 2004Q4

REPORT INFORMATION
  Report Type: 
  Country: None (occurrence: None)
  Receive Date: 20041223
  Receipt Date: 20041217
  Transmission Date: 20050328
  Serious: Yes (Hospitalization)
  Sender: FDA-Public Use
  Company Number: US-BRISTOL-MYERS SQUIBB COMPANY-12799243

PATIENT
  Age: 56 Year
  Sex: Male
  Weight: 93 kg

DRUGS (4)
  1. CETUXIMAB [Suspect]
     Indication: PANCREATIC CARCINOMA
     Route: 042
     Dates: start: 20041209, end: 20041209
  2. DOCETAXEL [Suspect]
     Indication: PANCREATIC CARCINOMA
     Route: 042
     Dates: start: 20041202, end: 20041202
  3. IRINOTECAN [Suspect]
     Indication: PANCREATIC CARCINOMA
     Route: 042
     Dates: start: 20041202, end: 20041202
  4. ENOXAPARIN SODIUM [Suspect]
     Indication: PANCREATIC CARCINOMA
     Dosage: TOTAL DOSE ADMINISTERED THIS COURSE
     Route: 042
     Dates: start: 20041209, end: 20041209

REACTIONS (6)
  - BLOOD CREATININE INCREASED [None]
  - DEHYDRATION [None]
  - DIARRHOEA [None]
  - THROMBOSIS [None]
  - VENOUS OCCLUSION [None]
  - WOUND DEHISCENCE [None]
